FAERS Safety Report 7182870 (Version 5)
Quarter: 2012Q4

REPORT INFORMATION
  Report Type: 
  Country: US (occurrence: US)
  Receive Date: 20091120
  Receipt Date: 20121012
  Transmission Date: 20130627
  Serious: Yes (Other)
  Sender: FDA-Public Use
  Company Number: US-BAYER-200938987NA

PATIENT
  Age: 21 Year
  Sex: Female
  Weight: 59.09 kg

DRUGS (6)
  1. YASMIN [Suspect]
     Indication: PREMENSTRUAL SYNDROME
     Route: 048
     Dates: start: 200508, end: 200612
  2. YASMIN [Suspect]
     Indication: PREMENSTRUAL SYNDROME
  3. YASMIN [Suspect]
     Indication: MENSTRUAL CYCLE MANAGEMENT
  4. YASMIN [Suspect]
     Indication: DYSMENORRHOEA
  5. YASMIN [Suspect]
     Indication: MENORRHAGIA
  6. VITAMINS [Concomitant]
     Dates: start: 200505

REACTIONS (5)
  - Deep vein thrombosis [Unknown]
  - Thrombosis [Unknown]
  - Coagulopathy [Unknown]
  - Pain [Unknown]
  - Oedema peripheral [Unknown]
